FAERS Safety Report 8622553 (Version 8)
Quarter: 2014Q2

REPORT INFORMATION
  Report Type: Spontaneous
  Country: FR (occurrence: FR)
  Receive Date: 20120619
  Receipt Date: 20140423
  Transmission Date: 20141212
  Serious: Yes (Hospitalization)
  Sender: FDA-Public Use
  Company Number: FR-GLAXOSMITHKLINE-B0681414A

PATIENT
  Age: 46 Year
  Sex: Male
  Weight: 70 kg

DRUGS (4)
  1. ADARTREL [Suspect]
     Indication: RESTLESS LEGS SYNDROME
     Route: 048
     Dates: start: 20100728, end: 20101023
  2. NEURONTIN [Concomitant]
     Indication: EPILEPSY
     Route: 048
     Dates: start: 2002
  3. EFFEXOR [Concomitant]
     Indication: DEPRESSION
     Dosage: 75MG PER DAY
     Route: 065
     Dates: start: 201002
  4. LEXOMIL [Concomitant]
     Indication: DEPRESSION
     Route: 065
     Dates: start: 2004

REACTIONS (45)
  - Confusional state [Recovered/Resolved]
  - Malaise [Recovered/Resolved]
  - Loss of consciousness [Recovered/Resolved]
  - Obsessive-compulsive disorder [Recovered/Resolved]
  - Disturbance in attention [Recovered/Resolved]
  - Convulsion [Recovered/Resolved]
  - Presyncope [Recovered/Resolved]
  - Flight of ideas [Unknown]
  - Change in sustained attention [Unknown]
  - Major depression [Unknown]
  - Anxiety [Unknown]
  - Dependence [Unknown]
  - Psychological trauma [Unknown]
  - Social avoidant behaviour [Unknown]
  - Akathisia [Unknown]
  - Judgement impaired [Unknown]
  - Phobia [Unknown]
  - Incoherent [Unknown]
  - Psychiatric symptom [Unknown]
  - Illusion [Unknown]
  - Aggression [Unknown]
  - Libido increased [Recovered/Resolved]
  - Self esteem decreased [Unknown]
  - Agoraphobia [Unknown]
  - Psychomotor hyperactivity [Unknown]
  - Palpitations [Recovered/Resolved]
  - Dyspnoea [Recovered/Resolved]
  - Suicide attempt [Recovered/Resolved]
  - Hypomania [Recovered/Resolved]
  - Suicidal ideation [Recovered/Resolved]
  - Impulse-control disorder [Recovered/Resolved]
  - Mood altered [Unknown]
  - Abnormal behaviour [Recovered/Resolved]
  - Compulsive shopping [Recovered/Resolved]
  - Amnesia [Recovered/Resolved]
  - Partial seizures [Recovered/Resolved]
  - Sinus tachycardia [Recovered/Resolved]
  - Headache [Unknown]
  - Depersonalisation [Recovered/Resolved]
  - Disinhibition [Recovered/Resolved]
  - Insomnia [Recovered/Resolved]
  - Syncope [Recovered/Resolved]
  - Mania [Recovered/Resolved]
  - Condition aggravated [Unknown]
  - Disability [Unknown]
